FAERS Safety Report 7778372 (Version 5)
Quarter: 2013Q2

REPORT INFORMATION
  Report Type: Report from Study
  Country: CA (occurrence: CA)
  Receive Date: 20110128
  Receipt Date: 20130417
  Transmission Date: 20140414
  Serious: Yes (Other)
  Sender: FDA-Public Use
  Company Number: CA-ROCHE-752503

PATIENT
  Age: 69 Year
  Sex: Female
  Weight: 54 kg

DRUGS (12)
  1. ACTEMRA [Suspect]
     Indication: RHEUMATOID ARTHRITIS
     Route: 042
  2. ACTEMRA [Suspect]
     Dosage: DOSE LEVEL: 8 MG/KG
     Route: 042
  3. ACTEMRA [Suspect]
     Dosage: DOSE LEVEL: 8 MG/KG
     Route: 042
  4. ACTEMRA [Suspect]
     Dosage: DOSE LEVEL: 8 MG/KG
     Route: 042
  5. ACTEMRA [Suspect]
     Dosage: DOSE LEVEL: 8 MG/KG
     Route: 042
  6. COD LIVER OIL [Concomitant]
  7. PREDNISONE [Concomitant]
  8. PANTOLOC [Concomitant]
  9. TYLENOL [Concomitant]
     Route: 065
  10. METHOTREXATE [Concomitant]
     Route: 048
  11. SALAZOPYRINE [Concomitant]
     Indication: RHEUMATOID ARTHRITIS
     Route: 048
  12. FOLIC ACID [Concomitant]
     Dosage: NUTRITIONAL SUPPLEMENT
     Route: 065

REACTIONS (14)
  - Adenocarcinoma of colon [Unknown]
  - Nasal congestion [Unknown]
  - Rhinorrhoea [Unknown]
  - Blood bilirubin increased [Unknown]
  - Aspartate aminotransferase increased [Unknown]
  - White blood cell count decreased [Unknown]
  - Mean cell volume decreased [Unknown]
  - Mean cell haemoglobin concentration decreased [Unknown]
  - Mean cell haemoglobin concentration decreased [Unknown]
  - Ankle fracture [Unknown]
  - Abdominal discomfort [Not Recovered/Not Resolved]
  - Dizziness [Not Recovered/Not Resolved]
  - Fibula fracture [Unknown]
  - Pain [Recovered/Resolved]
